FAERS Safety Report 5125244-5 (Version None)
Quarter: 2006Q4

REPORT INFORMATION
  Report Type: 
  Country: None (occurrence: None)
  Receive Date: 20061006
  Receipt Date: 20060928
  Transmission Date: 20070319
  Serious: Yes (Other)
  Sender: FDA-Public Use
  Company Number: 2006-BP-11423RO

PATIENT
  Age: 56 Year
  Sex: Male

DRUGS (3)
  1. METHOTREXATE [Suspect]
     Indication: LYMPHOCYTIC LEUKAEMIA
  2. CYCLOPHOSPHAMIDE [Suspect]
     Indication: LYMPHOCYTIC LEUKAEMIA
  3. DEXAMETHASONE TAB [Suspect]
     Dosage: 16 MG, PO
     Route: 048

REACTIONS (5)
  - ABNORMAL BEHAVIOUR [None]
  - ABULIA [None]
  - DISINHIBITION [None]
  - HYPOMANIA [None]
  - PROGRESSIVE MULTIFOCAL LEUKOENCEPHALOPATHY [None]
